FAERS Safety Report 17148476 (Version 2)
Quarter: 2019Q4

REPORT INFORMATION
  Report Type: Report from Study
  Country: GB (occurrence: GB)
  Receive Date: 20191212
  Receipt Date: 20191219
  Transmission Date: 20200122
  Serious: No
  Sender: FDA-Public Use
  Company Number: GB-AMGEN-GBRSL2019206190

PATIENT
  Age: 72 Year
  Sex: Female

DRUGS (1)
  1. AMGEVITA [Suspect]
     Active Substance: ADALIMUMAB
     Indication: COLITIS ULCERATIVE
     Dosage: WEEK 0: 160MG. WEEK 2: 80MG. WEEK 4: 40MG. MAINTENANCE DOSE: 40MG, Q2WK
     Route: 065

REACTIONS (3)
  - Pigmentation disorder [Unknown]
  - Blood urine present [Unknown]
  - Pollakiuria [Unknown]
